FAERS Safety Report 8839701 (Version 1)
Quarter: 2012Q4

REPORT INFORMATION
  Report Type: Spontaneous
  Country: US (occurrence: None)
  Receive Date: 20121011
  Receipt Date: 20121011
  Transmission Date: 20130627
  Serious: Yes (Other)
  Sender: FDA-Public Use
  Company Number: None

PATIENT
  Age: 32 Year
  Sex: Female
  Weight: 129.28 kg

DRUGS (2)
  1. MONTELUKAST [Suspect]
     Indication: ASTHMA
     Dosage: 10 mg
     Dates: start: 20120916, end: 20121018
  2. MONTELUKAST [Suspect]
     Indication: POLYPS
     Dosage: 10 mg
     Dates: start: 20120916, end: 20121018

REACTIONS (4)
  - Product substitution issue [None]
  - Throat irritation [None]
  - Nasal congestion [None]
  - Ear discomfort [None]
